FAERS Safety Report 8773178 (Version 1)
Quarter: 2012Q4

REPORT INFORMATION
  Report Type: 
  Country: US (occurrence: US)
  Receive Date: 20120907
  Receipt Date: 20120907
  Transmission Date: 20130627
  Serious: Yes (Other)
  Sender: FDA-Public Use
  Company Number: CHPA2012US019344

PATIENT
  Age: 63 Year
  Sex: Female

DRUGS (1)
  1. TRIAMINIC SOFTCHEWS UNKNOWN [Suspect]
     Indication: OROPHARYNGEAL PAIN
     Dosage: 1 or 2 DF, A DAY
     Route: 048

REACTIONS (2)
  - Head injury [Recovered/Resolved]
  - Fall [None]
